FAERS Safety Report 21128578 (Version 1)
Quarter: 2022Q3

REPORT INFORMATION
  Report Type: Report from Study
  Country: US (occurrence: US)
  Receive Date: 20220725
  Receipt Date: 20220725
  Transmission Date: 20221026
  Serious: Yes (Hospitalization, Other)
  Sender: FDA-Public Use
  Company Number: US-BRISTOL-MYERS SQUIBB COMPANY-2022-077410

PATIENT
  Age: 26 Year
  Sex: Female
  Weight: 113.4 kg

DRUGS (6)
  1. NIVOLUMAB [Suspect]
     Active Substance: NIVOLUMAB
     Indication: Hodgkin^s disease
     Route: 042
     Dates: start: 20220401, end: 20220415
  2. DACARBAZINE [Suspect]
     Active Substance: DACARBAZINE
     Indication: Hodgkin^s disease
     Route: 042
     Dates: start: 20220401, end: 20220415
  3. DOXORUBICIN HYDROCHLORIDE [Suspect]
     Active Substance: DOXORUBICIN HYDROCHLORIDE
     Indication: Hodgkin^s disease
     Route: 042
     Dates: start: 20220401, end: 20220415
  4. VINBLASTINE SULFATE [Suspect]
     Active Substance: VINBLASTINE SULFATE
     Indication: Hodgkin^s disease
     Dosage: ON DAYS 1 AND 15.
     Route: 042
     Dates: start: 20220401, end: 20220415
  5. AMOXICILLIN [Concomitant]
     Active Substance: AMOXICILLIN
  6. AZITHROMYCIN [Concomitant]
     Active Substance: AZITHROMYCIN

REACTIONS (1)
  - Haemolysis [Recovered/Resolved with Sequelae]

NARRATIVE: CASE EVENT DATE: 20220506
